FAERS Safety Report 4474492-6 (Version None)
Quarter: 2004Q4

REPORT INFORMATION
  Report Type: 
  Country: None (occurrence: None)
  Receive Date: 20041012
  Receipt Date: 20040930
  Transmission Date: 20050328
  Serious: Yes (Death, Hospitalization)
  Sender: FDA-Public Use
  Company Number: 2004-BP-08929MX

PATIENT
  Age: 42 Year
  Sex: Male

DRUGS (3)
  1. VIRAMUNE [Suspect]
     Dosage: 400 MG (200 MG, 1 TA B.I.D.); PO
     Route: 048
  2. LAMIVUDINE (LAMIVUDINE) (TA) [Concomitant]
  3. ZIDOVUDINE (ZIDOVUDINE) (TA) [Concomitant]

REACTIONS (1)
  - HEPATITIS FULMINANT [None]
